FAERS Safety Report 7357266-8 (Version None)
Quarter: 2011Q1

REPORT INFORMATION
  Report Type: 
  Country: None (occurrence: None)
  Receive Date: 20110308
  Receipt Date: 20110223
  Transmission Date: 20110831
  Serious: Yes (Death, Other)
  Sender: FDA-Public Use
  Company Number: 026449

PATIENT
  Sex: Female
  Weight: 62.1428 kg

DRUGS (13)
  1. SPIRONOLACTONE [Suspect]
     Indication: MEDICAL DIET
     Dosage: (ORAL)
     Route: 048
  2. SPIRONOLACTONE [Suspect]
     Indication: ASCITES
     Dosage: (ORAL)
     Route: 048
  3. SPIRONOLACTONE [Suspect]
     Indication: HEPATIC CIRRHOSIS
     Dosage: (ORAL)
     Route: 048
  4. IRON [Concomitant]
  5. CIMZIA [Suspect]
     Indication: CROHN'S DISEASE
     Dosage: (INDUCTION DOSE SUBCUTANEOUS), (2 SHOTS SUBCUTANEOUS)
     Route: 058
     Dates: start: 20101208, end: 20101201
  6. CIMZIA [Suspect]
     Indication: CROHN'S DISEASE
     Dosage: (INDUCTION DOSE SUBCUTANEOUS), (2 SHOTS SUBCUTANEOUS)
     Route: 058
     Dates: start: 20101013, end: 20100101
  7. OXYCODONE HCL [Concomitant]
  8. KLOR-CON [Concomitant]
  9. PREDNISONE [Suspect]
     Indication: HEPATIC CIRRHOSIS
  10. PREDNISONE [Suspect]
     Indication: ASCITES
  11. ASACOL [Concomitant]
  12. ATENOLOL [Concomitant]
  13. INDERAL /00030001/ [Concomitant]

REACTIONS (8)
  - RESPIRATORY FAILURE [None]
  - ANAEMIA [None]
  - MULTI-ORGAN FAILURE [None]
  - SEPSIS [None]
  - HEPATIC FAILURE [None]
  - RENAL FAILURE [None]
  - HYPOTENSION [None]
  - HAEMORRHAGE [None]
